FAERS Safety Report 8974891 (Version 2)
Quarter: 2013Q1

REPORT INFORMATION
  Report Type: Spontaneous
  Country: CA (occurrence: CA)
  Receive Date: 20121220
  Receipt Date: 20130110
  Transmission Date: 20140127
  Serious: Yes (Hospitalization, Other)
  Sender: FDA-Public Use
  Company Number: CA-ELI_LILLY_AND_COMPANY-CA201212003722

PATIENT
  Age: 76 Year
  Sex: Female
  Weight: 120 kg

DRUGS (17)
  1. FORTEO [Suspect]
     Indication: OSTEOPOROSIS
     Dosage: 20 UG, QD
     Route: 058
     Dates: start: 20120329, end: 20121031
  2. FORTEO [Suspect]
     Dosage: 20 UG, QD
     Route: 058
     Dates: start: 20121106
  3. HYDROCHLOROTHIAZIDE [Concomitant]
     Dosage: 12.5 MG, UNK
  4. TYLENOL ARTHRITIS [Concomitant]
  5. NORVASC [Concomitant]
     Dosage: UNK, QD
  6. SPIRIVA [Concomitant]
  7. SALBUTAMOL [Concomitant]
     Dosage: UNK, PRN
  8. PILOCARPINE [Concomitant]
  9. VITAMIN D [Concomitant]
  10. VITAMIN B COMPLEX [Concomitant]
  11. ZINC CITRATE [Concomitant]
  12. CALCIUM MAGNESIUM [Concomitant]
  13. GARLIC [Concomitant]
  14. FISH OIL [Concomitant]
  15. SALMON OIL [Concomitant]
  16. PREDNISONE [Concomitant]
  17. VENTOLIN                                /SCH/ [Concomitant]
     Dosage: UNK, PRN

REACTIONS (4)
  - Small intestinal obstruction [Recovered/Resolved]
  - Abdominal adhesions [Recovered/Resolved]
  - Vomiting [Recovered/Resolved]
  - Pain in extremity [Recovered/Resolved]
